FAERS Safety Report 6292110-1 (Version None)
Quarter: 2009Q3

REPORT INFORMATION
  Report Type: 
  Country: None (occurrence: None)
  Receive Date: 20090731
  Receipt Date: 20090728
  Transmission Date: 20100115
  Serious: Yes (Other)
  Sender: FDA-Public Use
  Company Number: NL-WYE-G04138309

PATIENT

DRUGS (1)
  1. TEMSIROLIMUS [Suspect]
     Dosage: UNKNOWN
     Route: 042
     Dates: start: 20090501

REACTIONS (2)
  - ANAPHYLACTOID REACTION [None]
  - DYSPNOEA [None]
